FAERS Safety Report 14751320 (Version 4)
Quarter: 2018Q2

REPORT INFORMATION
  Report Type: Spontaneous
  Country: FR (occurrence: FR)
  Receive Date: 20180412
  Receipt Date: 20180519
  Transmission Date: 20180711
  Serious: Yes (Death, Life-Threatening, Hospitalization, Other)
  Sender: FDA-Public Use
  Company Number: FR-AUROBINDO-AUR-APL-2015-10786

PATIENT
  Age: 67 Year
  Sex: Male

DRUGS (40)
  1. OXACILLIN [Concomitant]
     Active Substance: OXACILLIN SODIUM
     Dosage: ()
     Route: 042
  2. ALLOPURINOL. [Concomitant]
     Active Substance: ALLOPURINOL
     Dosage: 200 MG
     Route: 065
  3. CIPROFLOXACIN. [Suspect]
     Active Substance: CIPROFLOXACIN
     Indication: CELLULITIS STAPHYLOCOCCAL
  4. OLMESARTAN [Suspect]
     Active Substance: OLMESARTAN
     Dosage: 40 MG
     Route: 065
  5. HYDROCHLOROTHIAZIDE. [Suspect]
     Active Substance: HYDROCHLOROTHIAZIDE
     Dosage: 12.5 MG
  6. FLUINDIONE [Concomitant]
     Active Substance: FLUINDIONE
     Indication: PRODUCT USED FOR UNKNOWN INDICATION
     Dosage: 15 MG, UNK
     Route: 065
  7. GENTAMICIN. [Concomitant]
     Active Substance: GENTAMICIN
     Indication: CELLULITIS STAPHYLOCOCCAL
     Dosage: INTRAVENOUS TREATMENT FOR SHORT PERIOD OF TIME
     Route: 042
  8. GENTAMICIN. [Concomitant]
     Active Substance: GENTAMICIN
     Dosage: INTRAVENOUS TREATMENT FOR SHORT PERIOD OF TIME ()
     Route: 042
  9. AMIODARONE [Concomitant]
     Active Substance: AMIODARONE
     Indication: PRODUCT USED FOR UNKNOWN INDICATION
     Dosage: 200 MG, UNK
     Route: 065
  10. ALLOPURINOL. [Concomitant]
     Active Substance: ALLOPURINOL
     Indication: PRODUCT USED FOR UNKNOWN INDICATION
     Dosage: 200 MG
     Route: 065
  11. ALLOPURINOL. [Concomitant]
     Active Substance: ALLOPURINOL
     Route: 065
     Dates: start: 2012
  12. CORDARONE [Concomitant]
     Active Substance: AMIODARONE HYDROCHLORIDE
     Indication: PRODUCT USED FOR UNKNOWN INDICATION
     Dosage: ()
     Route: 065
     Dates: start: 2011
  13. FUSIDIC ACID [Interacting]
     Active Substance: FUSIDIC ACID
     Indication: STAPHYLOCOCCAL INFECTION
     Dosage: 1500 MG, DAILY
     Route: 048
  14. FUSIDIC ACID [Interacting]
     Active Substance: FUSIDIC ACID
     Indication: CELLULITIS STAPHYLOCOCCAL
     Dosage: ()
     Route: 048
     Dates: start: 20140208, end: 20140227
  15. OXACILLIN [Concomitant]
     Active Substance: OXACILLIN SODIUM
     Indication: CELLULITIS STAPHYLOCOCCAL
     Dosage: INTRAVENOUS TREATMENT FOR SHORT PERIOD OF TIME
     Route: 042
  16. OXACILLIN [Concomitant]
     Active Substance: OXACILLIN SODIUM
     Dosage: INTRAVENOUS TREATMENT FOR SHORT PERIOD OF TIME ()
     Route: 042
  17. AMIODARONE [Concomitant]
     Active Substance: AMIODARONE
     Indication: ENDOTRACHEAL INTUBATION
     Dosage: 200 MG
     Route: 065
  18. ALLOPURINOL. [Concomitant]
     Active Substance: ALLOPURINOL
     Dosage: 200 MG, UNK
     Route: 065
  19. UVEDOSE [Concomitant]
     Active Substance: CHOLECALCIFEROL
     Indication: PRODUCT USED FOR UNKNOWN INDICATION
     Dosage: ()
  20. OLMESARTAN [Suspect]
     Active Substance: OLMESARTAN
     Indication: STAPHYLOCOCCAL INFECTION
     Route: 065
  21. HYDROCHLOROTHIAZIDE. [Suspect]
     Active Substance: HYDROCHLOROTHIAZIDE
     Indication: STAPHYLOCOCCAL INFECTION
     Dosage: 12.5 MG, UNK
     Route: 065
  22. FLUINDIONE [Concomitant]
     Active Substance: FLUINDIONE
     Dosage: 15 MG
     Route: 065
  23. GENTAMICIN. [Concomitant]
     Active Substance: GENTAMICIN
     Indication: STAPHYLOCOCCAL INFECTION
     Route: 065
  24. GENTAMICIN. [Concomitant]
     Active Substance: GENTAMICIN
     Dosage: ()
     Route: 042
  25. CIPROFLOXACIN. [Suspect]
     Active Substance: CIPROFLOXACIN
     Indication: CELLULITIS STAPHYLOCOCCAL
     Dosage: 1000 MG, DAILY
     Route: 048
  26. LEVOFLOXACIN. [Suspect]
     Active Substance: LEVOFLOXACIN
     Indication: PRODUCT USED FOR UNKNOWN INDICATION
     Dosage: ()
     Route: 048
     Dates: start: 20140208
  27. OXACILLIN [Concomitant]
     Active Substance: OXACILLIN SODIUM
     Indication: STAPHYLOCOCCAL INFECTION
     Dosage: UNK
     Route: 065
  28. ALTEISDUO [Concomitant]
     Active Substance: HYDROCHLOROTHIAZIDE\OLMESARTAN MEDOXOMIL
     Indication: PRODUCT USED FOR UNKNOWN INDICATION
     Dosage: HYDROCHLOROTHIAZIDE 12.5MG/OLMESARTAN 40MG ()
     Dates: start: 2011
  29. PRAVASTATIN. [Suspect]
     Active Substance: PRAVASTATIN
     Indication: STAPHYLOCOCCAL INFECTION
     Dosage: 40 MG, UNK
     Route: 065
     Dates: start: 2007, end: 20140221
  30. LEVOFLOXACIN. [Suspect]
     Active Substance: LEVOFLOXACIN
     Dosage: ()
     Dates: start: 20140220, end: 20140228
  31. OLMESARTAN [Suspect]
     Active Substance: OLMESARTAN
     Indication: STAPHYLOCOCCAL INFECTION
     Dosage: 40 MG, UNK
     Route: 065
  32. PREVISCAN                          /00261401/ [Concomitant]
     Active Substance: PENTOXIFYLLINE
     Indication: PRODUCT USED FOR UNKNOWN INDICATION
     Dosage: ()
     Route: 065
  33. CETRIZINE [Concomitant]
     Active Substance: CETIRIZINE HYDROCHLORIDE
     Indication: PRODUCT USED FOR UNKNOWN INDICATION
     Dosage: ()
  34. CONDROSULF [Concomitant]
     Active Substance: SODIUM CHONDROITIN SULFATE
     Indication: PRODUCT USED FOR UNKNOWN INDICATION
     Dosage: ()
  35. HYDROCHLOROTHIAZIDE. [Suspect]
     Active Substance: HYDROCHLOROTHIAZIDE
     Indication: STAPHYLOCOCCAL INFECTION
  36. FLUINDIONE [Concomitant]
     Active Substance: FLUINDIONE
     Indication: PRODUCT USED FOR UNKNOWN INDICATION
     Dosage: 15 MG, UNK
     Route: 065
  37. GENTAMICIN. [Concomitant]
     Active Substance: GENTAMICIN
     Dosage: INTRAVENOUS TREATMENT FOR SHORT PERIOD OF TIME ()
     Route: 042
  38. OXACILLIN [Concomitant]
     Active Substance: OXACILLIN SODIUM
     Dosage: INTRAVENOUS TREATMENT FOR SHORT PERIOD OF TIME ()
     Route: 042
  39. AMIODARONE [Concomitant]
     Active Substance: AMIODARONE
     Dosage: 200 MG
     Route: 065
  40. PREVISCAN                          /00261401/ [Concomitant]
     Active Substance: PENTOXIFYLLINE
     Dosage: ()
     Route: 065
     Dates: start: 2011

REACTIONS (28)
  - Acute kidney injury [Fatal]
  - Hypernatraemia [Fatal]
  - Vomiting [Fatal]
  - Oliguria [Unknown]
  - Liver disorder [Unknown]
  - Hyporesponsive to stimuli [Fatal]
  - Toxicity to various agents [Fatal]
  - Shock [Fatal]
  - Atrioventricular block [Unknown]
  - Multiple organ dysfunction syndrome [Fatal]
  - Diarrhoea [Fatal]
  - Rhabdomyolysis [Fatal]
  - Renal tubular necrosis [Fatal]
  - Dehydration [Fatal]
  - Metabolic acidosis [Unknown]
  - Myalgia [Unknown]
  - Jaundice [Fatal]
  - Hepatocellular injury [Fatal]
  - Drug interaction [Fatal]
  - Blood bilirubin increased [Fatal]
  - Blood creatinine increased [Unknown]
  - Blood creatine phosphokinase increased [Unknown]
  - Fatigue [Unknown]
  - Asthenia [Unknown]
  - Gastrointestinal disorder [Unknown]
  - Cholestasis [Fatal]
  - Syncope [Fatal]
  - Hypotension [Fatal]

NARRATIVE: CASE EVENT DATE: 20140219
